FAERS Safety Report 7636402-X (Version None)
Quarter: 2011Q3

REPORT INFORMATION
  Report Type: 
  Country: None (occurrence: None)
  Receive Date: 20110726
  Receipt Date: 20110714
  Transmission Date: 20111222
  Serious: Yes (Hospitalization)
  Sender: FDA-Public Use
  Company Number: US-ASTRAZENECA-2011SE42095

PATIENT
  Sex: Female

DRUGS (1)
  1. VIMOVO [Suspect]
     Indication: ARTHRALGIA
     Dosage: 500 MG/20 MG TOTAL DAILY
     Route: 048
     Dates: start: 20110512, end: 20110703

REACTIONS (1)
  - INTRA-ABDOMINAL HAEMORRHAGE [None]
